FAERS Safety Report 21674891 (Version 5)
Quarter: 2023Q2

REPORT INFORMATION
  Report Type: Report from Study
  Country: US (occurrence: US)
  Receive Date: 20221202
  Receipt Date: 20230425
  Transmission Date: 20230722
  Serious: Yes (Other)
  Sender: FDA-Public Use
  Company Number: US-002147023-NVSC2022US279473

PATIENT
  Age: 59 Year
  Sex: Female

DRUGS (5)
  1. COSENTYX [Suspect]
     Active Substance: SECUKINUMAB
     Indication: Psoriasis
     Dosage: 300 MG, QW
     Route: 058
     Dates: start: 20221004
  2. COSENTYX [Suspect]
     Active Substance: SECUKINUMAB
     Dosage: 300 MG, QMO
     Route: 058
     Dates: start: 20221007
  3. COSENTYX [Suspect]
     Active Substance: SECUKINUMAB
     Dosage: 300 MG, QMO
     Route: 058
     Dates: start: 20221128, end: 20230130
  4. COSENTYX [Suspect]
     Active Substance: SECUKINUMAB
     Dosage: 300 MG, QMO
     Route: 058
     Dates: start: 202210, end: 20230130
  5. COSENTYX [Suspect]
     Active Substance: SECUKINUMAB
     Dosage: UNK
     Route: 058
     Dates: start: 20230204, end: 20230204

REACTIONS (8)
  - Hypersensitivity [Recovered/Resolved with Sequelae]
  - Blister [Recovered/Resolved with Sequelae]
  - Skin haemorrhage [Unknown]
  - Blister rupture [Recovered/Resolved]
  - Rash [Not Recovered/Not Resolved]
  - Pruritus [Unknown]
  - Skin fissures [Unknown]
  - Dry mouth [Unknown]

NARRATIVE: CASE EVENT DATE: 20230130
